FAERS Safety Report 20894896 (Version 1)
Quarter: 2022Q2

REPORT INFORMATION
  Report Type: Spontaneous
  Country: CA (occurrence: CA)
  Receive Date: 20220531
  Receipt Date: 20220531
  Transmission Date: 20220720
  Serious: Yes (Other)
  Sender: FDA-Public Use
  Company Number: CA-TAKEDA-2022TUS034072

PATIENT
  Age: 42 Year
  Sex: Male
  Weight: 66 kg

DRUGS (13)
  1. CUVITRU [Suspect]
     Active Substance: HUMAN IMMUNOGLOBULIN G
     Indication: Immunodeficiency common variable
     Dosage: 8 GRAM, 1/WEEK
     Route: 058
  2. GAMMAGARD LIQUID [Suspect]
     Active Substance: HUMAN IMMUNOGLOBULIN G
     Indication: Immunodeficiency common variable
     Route: 042
  3. IRON [Concomitant]
     Active Substance: IRON
     Indication: Product used for unknown indication
  4. FOLIC ACID [Concomitant]
     Active Substance: FOLIC ACID
  5. PENTASA [Concomitant]
     Active Substance: MESALAMINE
     Indication: Intestinal obstruction
  6. PREDNISONE [Concomitant]
     Active Substance: PREDNISONE
  7. HYDROMORPHONE [Concomitant]
     Active Substance: HYDROMORPHONE
     Indication: Pain
  8. PERINDOPRIL [Concomitant]
     Active Substance: PERINDOPRIL
     Indication: Hypertension
  9. BENADRYL [Concomitant]
     Active Substance: DIPHENHYDRAMINE HYDROCHLORIDE
     Indication: Hypersensitivity
  10. GRAVOL [Concomitant]
     Active Substance: DIMENHYDRINATE
     Indication: Nausea
  11. GRAVOL [Concomitant]
     Active Substance: DIMENHYDRINATE
     Indication: Vomiting
  12. VITAMIN B12 [Concomitant]
     Active Substance: CYANOCOBALAMIN
  13. Mag [Concomitant]

REACTIONS (8)
  - Intestinal haemorrhage [Recovering/Resolving]
  - Haematochezia [Unknown]
  - Anaphylactic reaction [Unknown]
  - Pharyngeal swelling [Unknown]
  - Enlarged uvula [Unknown]
  - Vomiting [Unknown]
  - Diarrhoea [Unknown]
  - Nausea [Unknown]
